FAERS Safety Report 10149365 (Version 1)
Quarter: 2014Q2

REPORT INFORMATION
  Report Type: Spontaneous
  Country: GB (occurrence: GB)
  Receive Date: 20140502
  Receipt Date: 20140502
  Transmission Date: 20141212
  Serious: Yes (Other)
  Sender: FDA-Public Use
  Company Number: GB-ROCHE-1392257

PATIENT
  Age: 16 Year
  Sex: Female
  Weight: 90 kg

DRUGS (3)
  1. XOLAIR [Suspect]
     Indication: ASTHMA
     Route: 058
     Dates: start: 20130219
  2. XOLAIR [Suspect]
     Route: 058
     Dates: start: 201310
  3. XOLAIR [Suspect]
     Route: 058
     Dates: end: 20140319

REACTIONS (6)
  - Injection site inflammation [Unknown]
  - Injection site dryness [Unknown]
  - Injection site erythema [Unknown]
  - Injection site pruritus [Unknown]
  - Injection site pain [Unknown]
  - Asthma [Recovered/Resolved]
